FAERS Safety Report 26155992 (Version 1)
Quarter: 2025Q4

REPORT INFORMATION
  Report Type: Other
  Country: EU (occurrence: EU)
  Receive Date: 20251215
  Receipt Date: 20251215
  Transmission Date: 20260117
  Serious: Yes (Hospitalization, Other)
  Sender: NOVITIUM PHARMA
  Company Number: EU-NOVITIUM PHARMA-000384

PATIENT
  Age: 27 Year
  Sex: Male

DRUGS (6)
  1. LACOSAMIDE [Suspect]
     Active Substance: LACOSAMIDE
     Indication: Partial seizures
  2. LEVETIRACETAM [Concomitant]
     Active Substance: LEVETIRACETAM
     Indication: Partial seizures
  3. PERAMPANEL [Concomitant]
     Active Substance: PERAMPANEL
     Indication: Partial seizures
  4. VALPROATE [Concomitant]
     Active Substance: VALPROIC ACID
     Indication: Status epilepticus
     Dosage: CONTINUOUS
  5. LACOSAMIDE [Suspect]
     Active Substance: LACOSAMIDE
     Indication: Status epilepticus
     Dosage: CONTINUOUS
  6. LEVETIRACETAM [Concomitant]
     Active Substance: LEVETIRACETAM
     Indication: Status epilepticus
     Dosage: CONTINUOUS

REACTIONS (3)
  - Hypertension [Recovered/Resolved]
  - Papilloedema [Recovered/Resolved]
  - Bradycardia [Recovered/Resolved]
